FAERS Safety Report 8916385 (Version 3)
Quarter: 2012Q4

REPORT INFORMATION
  Report Type: 
  Country: JP (occurrence: JP)
  Receive Date: 20121120
  Receipt Date: 20121221
  Transmission Date: 20130627
  Serious: Yes (Life-Threatening, Hospitalization)
  Sender: FDA-Public Use
  Company Number: JP-NOVOPROD-363884

PATIENT
  Age: 9 Year
  Sex: Female
  Weight: 24 kg

DRUGS (5)
  1. NORDITROPIN [Suspect]
     Indication: GROWTH HORMONE DEFICIENCY
     Dosage: 0.7 mg, qd 0.175mg/kg/ 6 times a week
     Route: 058
     Dates: start: 20091005, end: 20121005
  2. MEIACT [Concomitant]
     Indication: UPPER RESPIRATORY TRACT INFLAMMATION
     Dosage: 230 mg, qd
     Route: 048
     Dates: start: 20121004, end: 20121006
  3. CARBOCISTEINE [Concomitant]
     Indication: UPPER RESPIRATORY TRACT INFLAMMATION
     Dosage: 700 mg, qd
     Route: 048
  4. CYPROHEPTADINE HYDROCHLORIDE [Concomitant]
     Indication: UPPER RESPIRATORY TRACT INFLAMMATION
     Dosage: 4 mg, qd
     Route: 048
  5. CLOSTRIDIUM BUTYRICUM [Concomitant]
     Indication: UPPER RESPIRATORY TRACT INFLAMMATION
     Dosage: 2 g, qd
     Route: 048

REACTIONS (1)
  - Histiocytosis haematophagic [Recovered/Resolved]
